FAERS Safety Report 12746698 (Version 3)
Quarter: 2016Q4

REPORT INFORMATION
  Report Type: Spontaneous
  Country: US (occurrence: US)
  Receive Date: 20160915
  Receipt Date: 20161012
  Transmission Date: 20170207
  Serious: Yes (Life-Threatening, Hospitalization, Other)
  Sender: FDA-Public Use
  Company Number: US-009507513-1609USA004832

PATIENT
  Age: 2 Year
  Sex: Female

DRUGS (1)
  1. ASMANEX HFA [Suspect]
     Active Substance: MOMETASONE FUROATE
     Dosage: 100 MICROGRAM, UNK
     Route: 055
     Dates: start: 20160101

REACTIONS (8)
  - Drug dose omission [Unknown]
  - Drug administered to patient of inappropriate age [Unknown]
  - Respiratory disorder [Not Recovered/Not Resolved]
  - Seizure [Unknown]
  - Neutropenia [Unknown]
  - Product use issue [Unknown]
  - Femur fracture [Unknown]
  - Tracheitis [Unknown]

NARRATIVE: CASE EVENT DATE: 2016
